FAERS Safety Report 8624085 (Version 2)
Quarter: 2012Q4

REPORT INFORMATION
  Report Type: 
  Country: US (occurrence: US)
  Receive Date: 20120620
  Receipt Date: 20120828
  Transmission Date: 20130627
  Serious: No
  Sender: FDA-Public Use
  Company Number: US-ASTRAZENECA-2012SE38837

PATIENT
  Age: 80 Year
  Sex: Male

DRUGS (2)
  1. CRESTOR [Suspect]
     Route: 048
     Dates: start: 2005
  2. LIPITOR [Concomitant]

REACTIONS (3)
  - Diabetes mellitus [Unknown]
  - Intentional drug misuse [Unknown]
  - Pain in extremity [Unknown]
